FAERS Safety Report 13653232 (Version 1)
Quarter: 2017Q2

REPORT INFORMATION
  Report Type: Spontaneous
  Country: US (occurrence: US)
  Receive Date: 20170614
  Receipt Date: 20170614
  Transmission Date: 20170830
  Serious: No
  Sender: FDA-Public Use
  Company Number: US-ROCHE-682296

PATIENT
  Age: 83 Year
  Sex: Female

DRUGS (2)
  1. XELODA [Suspect]
     Active Substance: CAPECITABINE
     Indication: COLORECTAL CANCER METASTATIC
     Dosage: STRENGTH REPORTED AS: 500 MG.
     Route: 048
  2. XELODA [Suspect]
     Active Substance: CAPECITABINE
     Dosage: STRENGTH REPORTED AS: 150 MG.
     Route: 048

REACTIONS (1)
  - Dysphagia [Not Recovered/Not Resolved]
